FAERS Safety Report 25719801 (Version 1)
Quarter: 2025Q3

REPORT INFORMATION
  Report Type: Spontaneous
  Country: CA (occurrence: CA)
  Receive Date: 20250825
  Receipt Date: 20250825
  Transmission Date: 20251021
  Serious: Yes (Hospitalization, Other)
  Sender: CELLTRION
  Company Number: CA-CELLTRION INC.-2025CA028810

PATIENT

DRUGS (17)
  1. INFLIXIMAB [Suspect]
     Active Substance: INFLIXIMAB
     Indication: Crohn^s disease
     Route: 042
  2. INFLIXIMAB [Suspect]
     Active Substance: INFLIXIMAB
     Route: 042
  3. INFLIXIMAB [Suspect]
     Active Substance: INFLIXIMAB
     Route: 042
  4. AMLODIPINE BESYLATE [Concomitant]
     Active Substance: AMLODIPINE BESYLATE
  5. ASACOL [Concomitant]
     Active Substance: MESALAMINE
  6. CALCIUM [Concomitant]
     Active Substance: CALCIUM
  7. ENTOCORT [Concomitant]
     Active Substance: BUDESONIDE
  8. FERROUS FUMARATE [Concomitant]
     Active Substance: FERROUS FUMARATE
  9. FOSAMAX [Concomitant]
     Active Substance: ALENDRONATE SODIUM
  10. IRON [Concomitant]
     Active Substance: IRON
  11. LASIX [Concomitant]
     Active Substance: FUROSEMIDE
  12. MAGNESIUM [Concomitant]
     Active Substance: MAGNESIUM
  13. PANTOPRAZOLE [Concomitant]
     Active Substance: PANTOPRAZOLE
  14. ROSUVASTATIN CALCIUM [Concomitant]
     Active Substance: ROSUVASTATIN CALCIUM
  15. CHOLECALCIFEROL [Concomitant]
     Active Substance: CHOLECALCIFEROL
  16. XARELTO [Concomitant]
     Active Substance: RIVAROXABAN
  17. ZOPICLONE [Concomitant]
     Active Substance: ZOPICLONE

REACTIONS (5)
  - Back disorder [Not Recovered/Not Resolved]
  - Spinal fracture [Not Recovered/Not Resolved]
  - Rib fracture [Not Recovered/Not Resolved]
  - Off label use [Not Recovered/Not Resolved]
  - Intentional product use issue [Unknown]
